FAERS Safety Report 13884064 (Version 1)
Quarter: 2017Q3

REPORT INFORMATION
  Report Type: Report from Study
  Country: US (occurrence: US)
  Receive Date: 20170820
  Receipt Date: 20170820
  Transmission Date: 20171127
  Serious: No
  Sender: FDA-Public Use
  Company Number: PHEH2017US026501

PATIENT
  Age: 66 Year

DRUGS (2)
  1. ENTRESTO [Suspect]
     Active Substance: SACUBITRIL\VALSARTAN
     Indication: CARDIAC FAILURE CONGESTIVE
     Dosage: 50 MG/KG, BID
     Route: 048
     Dates: start: 20170117
  2. ENTRESTO [Suspect]
     Active Substance: SACUBITRIL\VALSARTAN
     Indication: MYOCARDIAL INFARCTION
     Dosage: 50 MG/KG, QD
     Route: 048

REACTIONS (5)
  - Dizziness [Unknown]
  - Underdose [Unknown]
  - Blood pressure decreased [Unknown]
  - Device use issue [Unknown]
  - Inappropriate schedule of drug administration [Unknown]

NARRATIVE: CASE EVENT DATE: 20170627
